FAERS Safety Report 20892689 (Version 2)
Quarter: 2022Q2

REPORT INFORMATION
  Report Type: Spontaneous
  Country: AR (occurrence: AR)
  Receive Date: 20220531
  Receipt Date: 20220607
  Transmission Date: 20220720
  Serious: Yes (Other)
  Sender: FDA-Public Use
  Company Number: AR-SA-SAC20220527000957

PATIENT
  Age: 15 Year
  Sex: Male

DRUGS (1)
  1. AGALSIDASE BETA [Suspect]
     Active Substance: AGALSIDASE BETA
     Indication: Fabry^s disease
     Dosage: UNK UNK, QOW

REACTIONS (5)
  - Cornea verticillata [Unknown]
  - Hypohidrosis [Unknown]
  - Gastrointestinal disorder [Unknown]
  - Actinic keratosis [Unknown]
  - Pain in extremity [Recovering/Resolving]
